FAERS Safety Report 7702385-7 (Version None)
Quarter: 2011Q3

REPORT INFORMATION
  Report Type: 
  Country: None (occurrence: None)
  Receive Date: 20110822
  Receipt Date: 20110818
  Transmission Date: 20111222
  Serious: Yes (Death, Hospitalization)
  Sender: FDA-Public Use
  Company Number: UG-ABBOTT-11P-165-0847900-00

PATIENT
  Age: 36 Year
  Sex: Female

DRUGS (3)
  1. LOPINAVIR/RITONAVIR [Suspect]
     Indication: HIV INFECTION
     Route: 048
     Dates: start: 20110317, end: 20110815
  2. ANTI-TUBERCULOSIS DRUGS UNSPECIFIED [Concomitant]
     Indication: ANTIBIOTIC PROPHYLAXIS
     Dates: start: 20110617
  3. ANTI-TUBERCULOSIS DRUGS UNSPECIFIED [Concomitant]
     Dates: start: 20110811

REACTIONS (1)
  - HEPATITIS [None]
